FAERS Safety Report 4284534-9 (Version None)
Quarter: 2004Q1

REPORT INFORMATION
  Report Type: 
  Country: None (occurrence: None)
  Receive Date: 20040130
  Receipt Date: 20040108
  Transmission Date: 20041129
  Serious: Yes (Death)
  Sender: FDA-Public Use
  Company Number: CA_040106538

PATIENT
  Age: 86 Year
  Sex: Female

DRUGS (1)
  1. PROZAC [Suspect]
     Dates: end: 20010701

REACTIONS (6)
  - DIFFICULTY IN WALKING [None]
  - DIZZINESS [None]
  - GENERAL PHYSICAL HEALTH DETERIORATION [None]
  - HEADACHE [None]
  - MARKEDLY REDUCED DIETARY INTAKE [None]
  - SOMNOLENCE [None]
